FAERS Safety Report 7016342-X (Version None)
Quarter: 2010Q3

REPORT INFORMATION
  Report Type: 
  Country: None (occurrence: None)
  Receive Date: 20100927
  Receipt Date: 20100915
  Transmission Date: 20110219
  Serious: Yes (Hospitalization)
  Sender: FDA-Public Use
  Company Number: FR-PFIZER INC-2010116653

PATIENT
  Age: 74 Year
  Sex: Female

DRUGS (6)
  1. NEURONTIN [Suspect]
     Indication: DRUG ADMINISTRATION ERROR
     Dosage: UNK
     Route: 048
     Dates: start: 20100824, end: 20100824
  2. TRAMADOL HCL [Suspect]
     Indication: DRUG ADMINISTRATION ERROR
     Dosage: 100 MG, UNK
     Route: 048
     Dates: start: 20100824, end: 20100824
  3. NEXIUM [Suspect]
     Indication: DRUG ADMINISTRATION ERROR
     Dosage: UNK
     Route: 048
     Dates: start: 20100824, end: 20100824
  4. BISOPROLOL FUMARATE [Concomitant]
     Dosage: UNK
     Dates: start: 20100824, end: 20100824
  5. ALFUZOSIN HCL [Concomitant]
     Dosage: UNK
     Dates: start: 20100824, end: 20100824
  6. NOCTRAN 10 [Concomitant]
     Dosage: UNK
     Dates: start: 20100824, end: 20100824

REACTIONS (3)
  - DISORIENTATION [None]
  - HALLUCINATION [None]
  - WRONG DRUG ADMINISTERED [None]
